FAERS Safety Report 14371394 (Version 1)
Quarter: 2018Q1

REPORT INFORMATION
  Report Type: Spontaneous
  Country: US (occurrence: US)
  Receive Date: 20180109
  Receipt Date: 20180109
  Transmission Date: 20180509
  Serious: Yes (Other)
  Sender: FDA-Public Use
  Company Number: None

PATIENT
  Age: 29 Year
  Sex: Female
  Weight: 72.57 kg

DRUGS (2)
  1. NEXPLANON [Suspect]
     Active Substance: ETONOGESTREL
     Indication: CONTRACEPTION
     Dosage: HORMONES GIVEN INTO/UNDER THE SKIN
     Route: 061
     Dates: start: 20161024, end: 20171002
  2. IRON PILLS [Concomitant]
     Active Substance: IRON

REACTIONS (6)
  - Anaemia [None]
  - Muscle spasms [None]
  - Haemoglobin decreased [None]
  - Amenorrhoea [None]
  - Menorrhagia [None]
  - Haemorrhage [None]

NARRATIVE: CASE EVENT DATE: 20171223
